FAERS Safety Report 7445630-8 (Version None)
Quarter: 2011Q2

REPORT INFORMATION
  Report Type: 
  Country: None (occurrence: None)
  Receive Date: 20110429
  Receipt Date: 20110426
  Transmission Date: 20111010
  Serious: Yes (Death, Hospitalization)
  Sender: FDA-Public Use
  Company Number: JP-ROCHE-773690

PATIENT
  Age: 60 Year
  Sex: Female
  Weight: 76 kg

DRUGS (4)
  1. IRINOTECAN HCL [Concomitant]
     Dosage: DOSAGE IS UNCERTAIN
     Route: 041
  2. FLUOROURACIL [Concomitant]
     Dosage: DOSAGE IS UNCERTAIN.
     Route: 041
  3. AVASTIN [Suspect]
     Indication: RECTAL CANCER METASTATIC
     Dosage: DOSAGE IS UNCERTAIN.
     Route: 041
  4. LEVOFOLINATE [Concomitant]
     Dosage: DOSAGE IS UNCERTAIN.
     Route: 041

REACTIONS (3)
  - NECROTISING FASCIITIS [None]
  - DISEASE PROGRESSION [None]
  - SEPTIC SHOCK [None]
